FAERS Safety Report 25783387 (Version 5)
Quarter: 2025Q4

REPORT INFORMATION
  Report Type: Spontaneous
  Country: US (occurrence: US)
  Receive Date: 20250910
  Receipt Date: 20251207
  Transmission Date: 20260117
  Serious: Yes (Other)
  Sender: SANOFI AVENTIS
  Company Number: US-SA-2025SA268655

PATIENT
  Age: 61 Year
  Sex: Male

DRUGS (2)
  1. DUPIXENT [Suspect]
     Active Substance: DUPILUMAB
     Indication: Asthma
     Dosage: 600 MG, 1X
     Route: 058
     Dates: start: 20250702, end: 20250702
  2. DUPIXENT [Suspect]
     Active Substance: DUPILUMAB
     Dosage: 300 MG, QOW
     Route: 058
     Dates: start: 202507

REACTIONS (15)
  - Neuropathy peripheral [Unknown]
  - Pneumonia [Recovering/Resolving]
  - Sinus disorder [Unknown]
  - Hyperaesthesia [Unknown]
  - Respiratory tract infection [Recovering/Resolving]
  - Skin irritation [Not Recovered/Not Resolved]
  - Laryngitis [Unknown]
  - Nasal congestion [Unknown]
  - Skin lesion [Unknown]
  - Stomatitis [Unknown]
  - Skin exfoliation [Unknown]
  - Pruritus [Not Recovered/Not Resolved]
  - Sinusitis [Unknown]
  - Asthma [Unknown]
  - Eczema [Unknown]

NARRATIVE: CASE EVENT DATE: 20250101
